FAERS Safety Report 8964730 (Version 1)
Quarter: 2012Q4

REPORT INFORMATION
  Report Type: 
  Country: IT (occurrence: IT)
  Receive Date: 20121213
  Receipt Date: 20121213
  Transmission Date: 20130627
  Serious: Yes (Hospitalization)
  Sender: FDA-Public Use
  Company Number: IT-BAYER-2012-130116

PATIENT
  Age: 52 Year
  Sex: Female

DRUGS (9)
  1. CARDIOASPIRIN [Suspect]
     Indication: DECOMPENSATION CARDIAC
     Dosage: 100 mg, QD
     Route: 048
     Dates: start: 20120101, end: 20121113
  2. PLAVIX [Suspect]
     Indication: DECOMPENSATION CARDIAC
     Dosage: Daily dose 75 mg
     Route: 048
     Dates: start: 20120101, end: 20121113
  3. DIAZEPAM [Concomitant]
     Dosage: Daily dose 90 gtt
     Route: 048
  4. PARACETAMOL + CODEINE [Concomitant]
  5. TRAZODONE [Concomitant]
  6. PREGABALIN [Concomitant]
     Dosage: Daily dose 450 mg
  7. PROMAZINE [Concomitant]
     Dosage: Daily dose 15 gtt
  8. SYCREST [Concomitant]
     Dosage: UNK
  9. DEPAKIN CHRONO [Concomitant]

REACTIONS (4)
  - Shock haemorrhagic [Recovering/Resolving]
  - Gastrointestinal haemorrhage [Recovering/Resolving]
  - Haematemesis [Recovering/Resolving]
  - Gastric ulcer [Recovering/Resolving]
